FAERS Safety Report 10251434 (Version 2)
Quarter: 2014Q2

REPORT INFORMATION
  Report Type: Spontaneous
  Country: BR (occurrence: BR)
  Receive Date: 20140623
  Receipt Date: 20140623
  Transmission Date: 20141212
  Serious: Yes (Congenital Anomaly, Other)
  Sender: FDA-Public Use
  Company Number: BR-AMGEN-BRASP2014038284

PATIENT
  Age: 61 Year
  Sex: Female
  Weight: 83 kg

DRUGS (1)
  1. ENBREL [Suspect]
     Indication: RHEUMATOID ARTHRITIS
     Dosage: 50 MG, ONCE WEEKLY
     Route: 058
     Dates: start: 201308, end: 2014

REACTIONS (4)
  - Pain in extremity [Unknown]
  - Rheumatoid arthritis [Unknown]
  - Inflammation [Unknown]
  - Drug ineffective [Unknown]
